FAERS Safety Report 16741735 (Version 2)
Quarter: 2019Q3

REPORT INFORMATION
  Report Type: Spontaneous
  Country: FR (occurrence: FR)
  Receive Date: 20190826
  Receipt Date: 20190903
  Transmission Date: 20191005
  Serious: Yes (Other)
  Sender: FDA-Public Use
  Company Number: FR-AMGEN-FRASP2019134957

PATIENT
  Age: 66 Year
  Sex: Male
  Weight: 76 kg

DRUGS (4)
  1. VORICONAZOLE. [Suspect]
     Active Substance: VORICONAZOLE
     Dosage: 2 MG/KG EVERY 12 HRS
     Route: 042
     Dates: start: 20180726
  2. BLINATUMOMAB [Suspect]
     Active Substance: BLINATUMOMAB
     Indication: B PRECURSOR TYPE ACUTE LEUKAEMIA
     Dosage: UNK
     Route: 065
     Dates: end: 20180718
  3. VORICONAZOLE. [Suspect]
     Active Substance: VORICONAZOLE
     Indication: FUNGAEMIA
     Dosage: 6 MG/KG EVERY 12 HRS FOR 1 DAY
     Route: 042
     Dates: start: 20180718
  4. VORICONAZOLE. [Suspect]
     Active Substance: VORICONAZOLE
     Dosage: 4 MG/KG EVERY 12 HRS
     Route: 042

REACTIONS (7)
  - Febrile neutropenia [Recovered/Resolved]
  - Fungaemia [Recovered/Resolved]
  - Hallucination [Recovered/Resolved]
  - Immunosuppression [Recovered/Resolved]
  - White blood cell count increased [Unknown]
  - Leukopenia [Recovered/Resolved]
  - Trichosporon infection [Recovering/Resolving]

NARRATIVE: CASE EVENT DATE: 20180713
